FAERS Safety Report 5313515-9 (Version None)
Quarter: 2007Q2

REPORT INFORMATION
  Report Type: 
  Country: None (occurrence: None)
  Receive Date: 20070424
  Receipt Date: 20070409
  Transmission Date: 20071010
  Serious: Yes (Death)
  Sender: FDA-Public Use
  Company Number: 2007US000792

PATIENT
  Age: 12 Year

DRUGS (1)
  1. PROGRAF [Suspect]
     Indication: GRAFT VERSUS HOST DISEASE

REACTIONS (5)
  - CHAPPED LIPS [None]
  - ERYTHEMA [None]
  - GRAFT VERSUS HOST DISEASE [None]
  - PAIN [None]
  - SWELLING [None]
